FAERS Safety Report 9287343 (Version 2)
Quarter: 2013Q3

REPORT INFORMATION
  Report Type: Report from Study
  Country: US (occurrence: US)
  Receive Date: 20130514
  Receipt Date: 20130926
  Transmission Date: 20140515
  Serious: Yes (Hospitalization)
  Sender: FDA-Public Use
  Company Number: US-009507513-1305USA005211

PATIENT
  Age: 63 Year
  Sex: Female
  Weight: 76.2 kg

DRUGS (8)
  1. DEXAMETHASONE [Suspect]
     Indication: PLASMA CELL MYELOMA
     Dosage: 20 MG, DAYS 1,2,4,5,8,9,11,12 EVERY 21 DAYS
     Route: 048
     Dates: start: 20130416
  2. BORTEZOMIB [Suspect]
     Indication: PLASMA CELL MYELOMA
     Dosage: 1.3 MG/M2 ON DAYS 1,4,8,11 EVERY 21 DAYS
     Route: 058
     Dates: start: 20130416
  3. ACYCLOVIR [Concomitant]
     Dosage: UNK
     Dates: start: 20130416
  4. OXYCONTIN [Concomitant]
     Dosage: UNK
     Dates: start: 201303
  5. OXYCODONE [Concomitant]
     Dosage: UNK
     Dates: start: 201303
  6. POTASSIUM CHLORIDE [Concomitant]
     Dosage: UNK
     Dates: start: 201303
  7. PROCHLORPERAZINE [Concomitant]
     Dosage: UNK
     Dates: start: 201304
  8. SENNA [Concomitant]
     Dosage: UNK
     Dates: start: 201303

REACTIONS (1)
  - Pneumonia [Recovered/Resolved]
